FAERS Safety Report 10017355 (Version 1)
Quarter: 2014Q1

REPORT INFORMATION
  Report Type: Report from Study
  Country: FR (occurrence: FR)
  Receive Date: 20140318
  Receipt Date: 20140318
  Transmission Date: 20141002
  Serious: Yes (Hospitalization, Other)
  Sender: FDA-Public Use
  Company Number: FR-ROCHE-1361764

PATIENT
  Sex: Male

DRUGS (28)
  1. RITUXIMAB [Suspect]
     Indication: RHEUMATOID ARTHRITIS
     Route: 042
     Dates: start: 20061005
  2. RITUXIMAB [Suspect]
     Route: 042
     Dates: start: 20061019
  3. RITUXIMAB [Suspect]
     Route: 042
     Dates: start: 20070329
  4. RITUXIMAB [Suspect]
     Route: 042
     Dates: start: 20070412
  5. RITUXIMAB [Suspect]
     Route: 042
     Dates: start: 20070927
  6. RITUXIMAB [Suspect]
     Route: 042
     Dates: start: 20071011
  7. RITUXIMAB [Suspect]
     Route: 042
     Dates: start: 20080313
  8. RITUXIMAB [Suspect]
     Route: 042
     Dates: start: 20080327
  9. RITUXIMAB [Suspect]
     Route: 042
     Dates: start: 20081009
  10. RITUXIMAB [Suspect]
     Route: 042
     Dates: start: 20081023
  11. RITUXIMAB [Suspect]
     Route: 042
     Dates: start: 20090603
  12. RITUXIMAB [Suspect]
     Route: 042
     Dates: start: 20100225
  13. RITUXIMAB [Suspect]
     Route: 042
     Dates: start: 20100313
  14. RITUXIMAB [Suspect]
     Route: 042
     Dates: start: 20101008
  15. RITUXIMAB [Suspect]
     Route: 042
     Dates: start: 20101022
  16. RITUXIMAB [Suspect]
     Route: 042
     Dates: start: 20110504
  17. RITUXIMAB [Suspect]
     Route: 042
     Dates: start: 20110518
  18. RITUXIMAB [Suspect]
     Route: 042
     Dates: start: 20120106
  19. RITUXIMAB [Suspect]
     Route: 042
     Dates: start: 20120120
  20. RITUXIMAB [Suspect]
     Route: 042
     Dates: start: 20121016
  21. RITUXIMAB [Suspect]
     Route: 042
     Dates: start: 20121030
  22. RITUXIMAB [Suspect]
     Route: 042
     Dates: start: 20130424
  23. RITUXIMAB [Suspect]
     Route: 042
     Dates: start: 20130510
  24. METHOTREXATE [Concomitant]
  25. CORTANCYL [Concomitant]
  26. METHYLPREDNISOLONE [Concomitant]
  27. PARACETAMOL [Concomitant]
  28. HYDROXYCHLOROQUINE [Concomitant]

REACTIONS (15)
  - Atrial fibrillation [Recovered/Resolved]
  - Hepatocellular injury [Recovered/Resolved]
  - Infusion related reaction [Recovered/Resolved]
  - Chills [Recovered/Resolved]
  - Urine analysis abnormal [Recovered/Resolved]
  - Dyspepsia [Recovered/Resolved]
  - Oedema peripheral [Not Recovered/Not Resolved]
  - Larynx irritation [Not Recovered/Not Resolved]
  - Bronchial obstruction [Not Recovered/Not Resolved]
  - Epistaxis [Not Recovered/Not Resolved]
  - Bronchopneumonia [Recovered/Resolved]
  - Diarrhoea [Recovered/Resolved]
  - Upper respiratory tract infection [Recovered/Resolved]
  - Bronchopneumonia [Recovered/Resolved]
  - Bronchitis [Recovered/Resolved]
